FAERS Safety Report 4554392-3 (Version None)
Quarter: 2005Q1

REPORT INFORMATION
  Report Type: 
  Country: None (occurrence: None)
  Receive Date: 20050118
  Receipt Date: 20050106
  Transmission Date: 20050727
  Serious: Yes (Other)
  Sender: FDA-Public Use
  Company Number: US-JNJFOC-20050101912

PATIENT
  Sex: Female
  Weight: 67.59 kg

DRUGS (3)
  1. TOPAMAX [Suspect]
     Indication: COMPLEX PARTIAL SEIZURES
  2. DITROPAN XL [Concomitant]
  3. BOTOX [Concomitant]
     Route: 050

REACTIONS (8)
  - AMNESIA [None]
  - ANGER [None]
  - DIABETES MELLITUS [None]
  - FEELING ABNORMAL [None]
  - HEPATIC STEATOSIS [None]
  - SOCIAL PROBLEM [None]
  - URINARY INCONTINENCE [None]
  - WEIGHT INCREASED [None]
